FAERS Safety Report 10833351 (Version 3)
Quarter: 2015Q1

REPORT INFORMATION
  Report Type: Report from Study
  Country: BR (occurrence: BR)
  Receive Date: 20150219
  Receipt Date: 20150330
  Transmission Date: 20150721
  Serious: Yes (Hospitalization)
  Sender: FDA-Public Use
  Company Number: BR-ABBVIE-15K-020-1347219-00

PATIENT
  Age: 42 Year
  Sex: Male
  Weight: 75 kg

DRUGS (7)
  1. CLOPAM [Concomitant]
     Indication: SLEEP DISORDER THERAPY
     Route: 048
     Dates: start: 2008
  2. NITRAPAN [Concomitant]
     Indication: DEPRESSION
     Route: 048
     Dates: start: 2011
  3. TEGRETOL [Concomitant]
     Active Substance: CARBAMAZEPINE
     Indication: PAIN
     Route: 048
     Dates: start: 2012
  4. METHADONE HYDROCHLORIDE. [Concomitant]
     Active Substance: METHADONE HYDROCHLORIDE
     Indication: PAIN
     Route: 048
     Dates: start: 2013
  5. HUMIRA [Suspect]
     Active Substance: ADALIMUMAB
     Indication: ANKYLOSING SPONDYLITIS
     Route: 058
     Dates: start: 20130502, end: 201410
  6. AMYTRIL [Concomitant]
     Active Substance: AMITRIPTYLINE HYDROCHLORIDE
     Indication: DEPRESSION
     Route: 048
     Dates: start: 2007
  7. PONDERA [Concomitant]
     Active Substance: PAROXETINE HYDROCHLORIDE
     Indication: DEPRESSION
     Route: 048
     Dates: start: 2014

REACTIONS (10)
  - Arthralgia [Unknown]
  - Lung infection [Unknown]
  - Tuberculin test positive [Unknown]
  - Rheumatic disorder [Unknown]
  - Pain [Not Recovered/Not Resolved]
  - Insomnia [Recovering/Resolving]
  - Pulmonary mass [Not Recovered/Not Resolved]
  - Mobility decreased [Recovering/Resolving]
  - Pain in extremity [Unknown]
  - Pyrexia [Recovering/Resolving]

NARRATIVE: CASE EVENT DATE: 201409
